FAERS Safety Report 20082682 (Version 1)
Quarter: 2021Q4

REPORT INFORMATION
  Report Type: Other
  Country: CA (occurrence: CA)
  Receive Date: 20211117
  Receipt Date: 20211117
  Transmission Date: 20220304
  Serious: Yes (Other)
  Sender: FDA-Public Use
  Company Number: CA-ASTELLAS-2021US043761

PATIENT
  Age: 38 Year
  Sex: Female

DRUGS (2)
  1. TACROLIMUS [Suspect]
     Active Substance: TACROLIMUS
     Indication: Allogenic bone marrow transplantation therapy
     Dosage: UNK, UNKNOWN FREQ.
     Route: 065
  2. PREDNISONE [Suspect]
     Active Substance: PREDNISONE
     Indication: Allogenic bone marrow transplantation therapy
     Dosage: UNK UNK, UNKNOWN FREQ.
     Route: 065

REACTIONS (4)
  - Graft versus host disease [Unknown]
  - Graft versus host disease in skin [Unknown]
  - Product use in unapproved indication [Unknown]
  - Off label use [Unknown]
